FAERS Safety Report 10499767 (Version 1)
Quarter: 2014Q4

REPORT INFORMATION
  Report Type: Spontaneous
  Country: US (occurrence: US)
  Receive Date: 20141006
  Receipt Date: 20141006
  Transmission Date: 20150528
  Serious: No
  Sender: FDA-Public Use
  Company Number: US-AMGEN INC.-USASP2014067893

PATIENT
  Sex: Female

DRUGS (3)
  1. PROLIA [Suspect]
     Active Substance: DENOSUMAB
     Indication: PRODUCT USED FOR UNKNOWN INDICATION
     Route: 065
  2. ZESTRIL [Concomitant]
     Active Substance: LISINOPRIL
  3. IRON [Concomitant]
     Active Substance: IRON

REACTIONS (9)
  - Hypersensitivity [Recovered/Resolved]
  - Skin sensitisation [Unknown]
  - Flatulence [Recovering/Resolving]
  - Tooth disorder [Unknown]
  - Pyrexia [Recovered/Resolved]
  - Skin lesion [Unknown]
  - Red blood cell count decreased [Unknown]
  - Pruritus [Recovered/Resolved]
  - Pain in jaw [Unknown]
